FAERS Safety Report 6688749-1 (Version None)
Quarter: 2010Q2

REPORT INFORMATION
  Report Type: 
  Country: None (occurrence: None)
  Receive Date: 20100420
  Receipt Date: 20100413
  Transmission Date: 20101027
  Serious: Yes (Hospitalization)
  Sender: FDA-Public Use
  Company Number: B0647252A

PATIENT
  Age: 70 Year
  Sex: Female
  Weight: 44 kg

DRUGS (3)
  1. VALTREX [Suspect]
     Indication: HERPES ZOSTER
     Dosage: 3000MG PER DAY
     Route: 048
     Dates: start: 20100224, end: 20100226
  2. ZOVIRAX [Concomitant]
     Indication: HERPES ZOSTER
     Dosage: 750MG PER DAY
     Route: 042
     Dates: start: 20100227, end: 20100301
  3. ZOVIRAX [Concomitant]
     Dosage: 500MG PER DAY
     Route: 042
     Dates: start: 20100302, end: 20100305

REACTIONS (1)
  - LIVER DISORDER [None]
